FAERS Safety Report 7270318-6 (Version None)
Quarter: 2011Q1

REPORT INFORMATION
  Report Type: 
  Country: None (occurrence: None)
  Receive Date: 20110202
  Receipt Date: 20110103
  Transmission Date: 20110831
  Serious: No
  Sender: FDA-Public Use
  Company Number: US-BAYER-200942932NA

PATIENT
  Sex: Female
  Weight: 73 kg

DRUGS (1)
  1. YAZ [Suspect]
     Indication: PRODUCT USED FOR UNKNOWN INDICATION
     Route: 048
     Dates: start: 20080801, end: 20081201

REACTIONS (2)
  - CHOLELITHIASIS [None]
  - GALLBLADDER CHOLESTEROLOSIS [None]
